FAERS Safety Report 6829581-5 (Version None)
Quarter: 2010Q3

REPORT INFORMATION
  Report Type: 
  Country: None (occurrence: None)
  Receive Date: 20100709
  Receipt Date: 20070403
  Transmission Date: 20110219
  Serious: No
  Sender: FDA-Public Use
  Company Number: US-PFIZER INC-2007017448

PATIENT
  Sex: Male
  Weight: 86.18 kg

DRUGS (2)
  1. CHANTIX [Suspect]
     Indication: SMOKING CESSATION THERAPY
     Route: 048
     Dates: start: 20061201, end: 20070301
  2. ANAESTHETICS [Suspect]
     Indication: SURGERY
     Dates: start: 20060101

REACTIONS (4)
  - AGGRESSION [None]
  - DYSGEUSIA [None]
  - MEMORY IMPAIRMENT [None]
  - PERSONALITY DISORDER [None]
